FAERS Safety Report 6521912-9 (Version None)
Quarter: 2009Q4

REPORT INFORMATION
  Report Type: 
  Country: None (occurrence: None)
  Receive Date: 20091229
  Receipt Date: 20091229
  Transmission Date: 20100525
  Serious: Yes (Hospitalization)
  Sender: FDA-Public Use
  Company Number: None

PATIENT
  Age: 55 Year
  Sex: Male
  Weight: 90.3 kg

DRUGS (2)
  1. AMITRIPTYLINE HCL [Suspect]
     Indication: PAIN
     Dosage: 50 MG AT BEDTIME PO
     Route: 048
     Dates: start: 20071022, end: 20091012
  2. CYCLOBENZAPRINE HCL [Suspect]
     Indication: PAIN
     Dosage: 10 MG BID PO
     Route: 048
     Dates: start: 20090702, end: 20091012

REACTIONS (1)
  - DELIRIUM [None]
